FAERS Safety Report 7249467-4 (Version None)
Quarter: 2011Q1

REPORT INFORMATION
  Report Type: 
  Country: None (occurrence: None)
  Receive Date: 20110128
  Receipt Date: 20101207
  Transmission Date: 20110831
  Serious: Yes (Other)
  Sender: FDA-Public Use
  Company Number: US-BAYER-201030397NA

PATIENT
  Sex: Female

DRUGS (5)
  1. YASMIN [Suspect]
     Indication: DYSMENORRHOEA
     Dosage: UNK UNK, QD
     Route: 048
     Dates: start: 20040101, end: 20051215
  2. FLEXERIL [Concomitant]
     Dosage: UNK
  3. YASMIN [Suspect]
     Indication: MENSTRUATION IRREGULAR
     Dosage: UNK
     Dates: start: 20060101
  4. YASMIN [Suspect]
     Indication: CONTRACEPTION
  5. RELAFEN [Concomitant]

REACTIONS (5)
  - ABDOMINAL PAIN UPPER [None]
  - CHEST PAIN [None]
  - CHOLECYSTITIS CHRONIC [None]
  - CHOLELITHIASIS [None]
  - GASTROOESOPHAGEAL REFLUX DISEASE [None]
